FAERS Safety Report 6612184-5 (Version None)
Quarter: 2010Q1

REPORT INFORMATION
  Report Type: 
  Country: None (occurrence: None)
  Receive Date: 20100303
  Receipt Date: 20100224
  Transmission Date: 20100710
  Serious: Yes (Hospitalization, Other)
  Sender: FDA-Public Use
  Company Number: US-ELI_LILLY_AND_COMPANY-US201001004019

PATIENT
  Sex: Female

DRUGS (7)
  1. BYETTA [Suspect]
     Indication: TYPE 2 DIABETES MELLITUS
     Dosage: 5 UG, 2/D
     Route: 058
     Dates: start: 20070425, end: 20070516
  2. BYETTA [Suspect]
     Dosage: 10 UG, 2/D
     Route: 058
     Dates: start: 20070516, end: 20081101
  3. METFORMIN HYDROCHLORIDE [Concomitant]
     Indication: TYPE 2 DIABETES MELLITUS
     Dosage: 1000 MG, DAILY (1/D)
     Route: 048
  4. LIPITOR [Concomitant]
     Dosage: 10 MG, DAILY (1/D)
     Route: 048
  5. TRICOR [Concomitant]
     Dosage: 145 MG, DAILY (1/D)
     Route: 048
  6. SYNTHROID [Concomitant]
     Indication: THYROID DISORDER
     Dosage: 75 MG, DAILY (1/D)
     Route: 047
  7. VITAMIN D [Concomitant]
     Dosage: UNK, WEEKLY (1/W)

REACTIONS (5)
  - NEPHROLITHIASIS [None]
  - OFF LABEL USE [None]
  - PYELONEPHRITIS ACUTE [None]
  - RENAL FAILURE ACUTE [None]
  - SEPSIS SYNDROME [None]
